FAERS Safety Report 11194341 (Version 2)
Quarter: 2017Q1

REPORT INFORMATION
  Report Type: Spontaneous
  Country: US (occurrence: US)
  Receive Date: 20150616
  Receipt Date: 20170324
  Transmission Date: 20170428
  Serious: Yes (Hospitalization, Other)
  Sender: FDA-Public Use
  Company Number: US-ELI_LILLY_AND_COMPANY-US201506004815

PATIENT
  Sex: Male
  Weight: 124 kg

DRUGS (4)
  1. WELLBUTRIN [Suspect]
     Active Substance: BUPROPION HYDROCHLORIDE
     Indication: ANXIETY
  2. CYMBALTA [Suspect]
     Active Substance: DULOXETINE HYDROCHLORIDE
     Indication: DEPRESSION
     Dosage: UNK, UNKNOWN
     Route: 048
     Dates: end: 20140408
  3. CYMBALTA [Suspect]
     Active Substance: DULOXETINE HYDROCHLORIDE
     Indication: ANXIETY
  4. WELLBUTRIN [Suspect]
     Active Substance: BUPROPION HYDROCHLORIDE
     Indication: DEPRESSION
     Dosage: UNK, UNKNOWN
     Route: 065
     Dates: end: 20140408

REACTIONS (22)
  - Hyperhidrosis [Unknown]
  - Paraesthesia [Unknown]
  - Insomnia [Unknown]
  - Emotional disorder [Unknown]
  - Chest pain [Unknown]
  - Confusional state [Unknown]
  - Fatigue [Unknown]
  - Tinnitus [Unknown]
  - Affect lability [Unknown]
  - Agitation [Unknown]
  - Anxiety [Unknown]
  - Headache [Unknown]
  - Drug withdrawal syndrome [Unknown]
  - Nightmare [Unknown]
  - Sleep disorder [Unknown]
  - Irritability [Unknown]
  - Dysphoria [Unknown]
  - Sensory disturbance [Unknown]
  - Suicidal ideation [Unknown]
  - Lethargy [Unknown]
  - Dyspnoea [Unknown]
  - Dizziness [Unknown]
